FAERS Safety Report 13213366 (Version 1)
Quarter: 2017Q1

REPORT INFORMATION
  Report Type: Spontaneous
  Country: US (occurrence: US)
  Receive Date: 20170209
  Receipt Date: 20170209
  Transmission Date: 20170428
  Serious: Yes (Other)
  Sender: FDA-Public Use
  Company Number: US-TEVA-738192USA

PATIENT
  Age: 8 Year
  Sex: Male
  Weight: 23 kg

DRUGS (1)
  1. DEXMETHYLPHENIDATE [Suspect]
     Active Substance: DEXMETHYLPHENIDATE HYDROCHLORIDE
     Indication: ATTENTION DEFICIT/HYPERACTIVITY DISORDER
     Dosage: 18 MILLIGRAM DAILY;
     Route: 065
     Dates: end: 20170111

REACTIONS (11)
  - Feeling abnormal [Recovering/Resolving]
  - Aggression [Unknown]
  - Eating disorder [Recovering/Resolving]
  - Seizure [Unknown]
  - Abdominal pain upper [Unknown]
  - Malaise [Unknown]
  - Unresponsive to stimuli [Unknown]
  - Anger [Not Recovered/Not Resolved]
  - Psychomotor hyperactivity [Unknown]
  - Amnesia [Unknown]
  - Illusion [Unknown]

NARRATIVE: CASE EVENT DATE: 201701
